FAERS Safety Report 4783961-0 (Version None)
Quarter: 2005Q3

REPORT INFORMATION
  Report Type: 
  Country: None (occurrence: None)
  Receive Date: 20050927
  Receipt Date: 20050802
  Transmission Date: 20060218
  Serious: No
  Sender: FDA-Public Use
  Company Number: USA0508104423

PATIENT
  Age: 44 Year
  Sex: Male

DRUGS (4)
  1. STRATTERA [Suspect]
     Indication: ATTENTION DEFICIT/HYPERACTIVITY DISORDER
     Dosage: 80 MG
     Dates: start: 20050101, end: 20050802
  2. SEROQUEL [Concomitant]
  3. LORATADINE [Concomitant]
  4. VIAGRA [Concomitant]

REACTIONS (2)
  - ANGER [None]
  - IRRITABILITY [None]
